FAERS Safety Report 4538194-X (Version None)
Quarter: 2004Q4

REPORT INFORMATION
  Report Type: 
  Country: None (occurrence: None)
  Receive Date: 20041221
  Receipt Date: 20041126
  Transmission Date: 20050328
  Serious: Yes (Other)
  Sender: FDA-Public Use
  Company Number: 000#8#2004-00748

PATIENT
  Age: 45 Year
  Sex: Female

DRUGS (3)
  1. ISOSORBIDE DINITRATE [Suspect]
     Indication: ARTERIOSPASM CORONARY
     Dosage: INTRACORONARY
     Route: 022
  2. SUMATRIPTAN (SUMATRIPTAN) [Concomitant]
  3. NITRATE [Concomitant]

REACTIONS (1)
  - DRUG INEFFECTIVE [None]
